FAERS Safety Report 4374857-7 (Version None)
Quarter: 2004Q2

REPORT INFORMATION
  Report Type: 
  Country: None (occurrence: None)
  Receive Date: 20040602
  Receipt Date: 20031001
  Transmission Date: 20050107
  Serious: Yes (Other)
  Sender: FDA-Public Use
  Company Number: US-JNJFOC-20031101663

PATIENT
  Age: 40 Year
  Sex: Female
  Weight: 88.4514 kg

DRUGS (3)
  1. PROPULSID [Suspect]
     Indication: GASTROOESOPHAGEAL REFLUX DISEASE
     Dosage: 10 MG, 4 IN 1 DAY
     Dates: start: 19961018
  2. PROVERA [Concomitant]
  3. SKELAXIN [Concomitant]

REACTIONS (5)
  - DIABETES MELLITUS [None]
  - DYSPNOEA [None]
  - HAEMORRHOIDS [None]
  - INSOMNIA [None]
  - SUICIDE ATTEMPT [None]
